FAERS Safety Report 8523332-4 (Version None)
Quarter: 2012Q3

REPORT INFORMATION
  Report Type: 
  Country: None (occurrence: None)
  Receive Date: 20120709
  Receipt Date: 20110714
  Transmission Date: 20120928
  Serious: Yes (Death, Hospitalization)
  Sender: FDA-Public Use
  Company Number: 987393

PATIENT
  Age: 64 Year
  Sex: Male
  Weight: 73.8 kg

DRUGS (8)
  1. BENADRYL [Concomitant]
  2. ZANTAC [Concomitant]
  3. KYTRIL [Concomitant]
  4. MAXOLON [Concomitant]
  5. MAGNESIUM SULFATE [Concomitant]
  6. OXALIPLATIN [Suspect]
     Indication: COLON CANCER RECURRENT
     Dosage: 188 MG, 2 WEEKLY, INTRAVENOUS (NOT OTHERWISE SPECIFIED)
     Route: 042
     Dates: start: 20110712, end: 20110712
  7. DEXAMETHASONE [Concomitant]
  8. CALCIUM GLUCONATE [Concomitant]

REACTIONS (1)
  - ANAPHYLACTIC SHOCK [None]
